FAERS Safety Report 14805456 (Version 1)
Quarter: 2018Q2

REPORT INFORMATION
  Report Type: Spontaneous
  Country: DE (occurrence: DE)
  Receive Date: 20180425
  Receipt Date: 20180425
  Transmission Date: 20180711
  Serious: Yes (Hospitalization)
  Sender: FDA-Public Use
  Company Number: DE-BAYER-2018-075341

PATIENT
  Age: 92 Year
  Sex: Female

DRUGS (8)
  1. SELENASE [Concomitant]
     Dosage: 300 MG, UNK
  2. ENALAPRIL MALEATE W/ LERCANIDIPIN HCL [Concomitant]
     Dosage: 1 DF, OM (20/10 MG)
  3. IBUPROFEN. [Suspect]
     Active Substance: IBUPROFEN
     Dosage: 600 MG, PRN
  4. METAMIZOL [Concomitant]
     Active Substance: METAMIZOLE SODIUM
     Dosage: 1 DF, TID
  5. COLECALCIFEROL [Concomitant]
     Active Substance: CHOLECALCIFEROL
     Dosage: 1000 IU, BID
  6. ACETYLSALICYLIC ACID({=100 MG) [Suspect]
     Active Substance: ASPIRIN
     Dosage: 100 MG, OM
  7. TORASEMID [Concomitant]
     Active Substance: TORSEMIDE
     Dosage: 10 MG, OM
  8. CARMEN [Concomitant]
     Active Substance: LERCANIDIPINE
     Dosage: 10 MG, UNK

REACTIONS (2)
  - Haematemesis [Unknown]
  - Nausea [Unknown]
